FAERS Safety Report 7368321-0 (Version None)
Quarter: 2011Q1

REPORT INFORMATION
  Report Type: 
  Country: None (occurrence: None)
  Receive Date: 20110323
  Receipt Date: 20110311
  Transmission Date: 20110831
  Serious: Yes (Other)
  Sender: FDA-Public Use
  Company Number: US-PFIZER INC-2006031819

PATIENT
  Sex: Female
  Weight: 63 kg

DRUGS (4)
  1. NEURONTIN [Suspect]
     Dosage: 300 MG, UNK
     Dates: start: 20030911
  2. NEURONTIN [Suspect]
     Dosage: 600 MG, 3X/DAY
     Dates: start: 20031201
  3. NEURONTIN [Suspect]
     Dosage: 300 MG, UNK
     Dates: start: 20030705
  4. NEURONTIN [Suspect]
     Indication: NEUROPATHY PERIPHERAL
     Dosage: 300 MG, 3X/DAY
     Route: 048
     Dates: start: 20030501

REACTIONS (3)
  - SUICIDE ATTEMPT [None]
  - SUICIDAL IDEATION [None]
  - INTENTIONAL OVERDOSE [None]
